FAERS Safety Report 11569830 (Version 1)
Quarter: 2015Q3

REPORT INFORMATION
  Report Type: Spontaneous
  Country: US (occurrence: None)
  Receive Date: 20150928
  Receipt Date: 20150928
  Transmission Date: 20151125
  Serious: Yes (Hospitalization)
  Sender: FDA-Public Use
  Company Number: None

PATIENT
  Age: 51 Year
  Sex: Female
  Weight: 86 kg

DRUGS (15)
  1. CEFTRIAXONE. [Suspect]
     Active Substance: CEFTRIAXONE
     Indication: BRAIN ABSCESS
     Route: 042
     Dates: start: 20150817, end: 20150918
  2. CEFTRIAXONE. [Suspect]
     Active Substance: CEFTRIAXONE
     Indication: STREPTOCOCCAL BACTERAEMIA
     Route: 042
     Dates: start: 20150817, end: 20150918
  3. ENALAPRIL (VASOTEC) [Concomitant]
  4. ASPIRIN. [Concomitant]
     Active Substance: ASPIRIN
  5. GABAPENTIN (NEURONTIN) [Concomitant]
  6. MIRALAX [Concomitant]
     Active Substance: POLYETHYLENE GLYCOL 3350
  7. COUMADIN [Concomitant]
     Active Substance: WARFARIN SODIUM
  8. ACETAMINOPHEN (TYLENOL EXTRA STRENGTH) [Concomitant]
  9. TRAZODONE (DESYREL) [Concomitant]
  10. OXYCODONE [Concomitant]
     Active Substance: OXYCODONE
  11. BISACODYL (DULCOLAX) [Concomitant]
  12. METOPROLOL SUCCINATE (TOPROL XL) [Concomitant]
  13. MULTIPLE VITAMIN ESSENTIAL [Concomitant]
  14. MAGNESIUM HYDROXYDE (MILK OF MAGNESIA) [Concomitant]
  15. SENNA DOCUSATE SODIUM [Concomitant]

REACTIONS (1)
  - Neutropenia [None]

NARRATIVE: CASE EVENT DATE: 20150917
